FAERS Safety Report 13639659 (Version 1)
Quarter: 2017Q2

REPORT INFORMATION
  Report Type: Spontaneous
  Country: US (occurrence: US)
  Receive Date: 20170609
  Receipt Date: 20170609
  Transmission Date: 20170830
  Serious: Yes (Hospitalization)
  Sender: FDA-Public Use
  Company Number: US-ROCHE-1148426

PATIENT
  Sex: Male

DRUGS (4)
  1. CLONAZEPAM. [Suspect]
     Active Substance: CLONAZEPAM
     Indication: PRODUCT USED FOR UNKNOWN INDICATION
     Route: 065
  2. CHLORAMPHENICOL [Concomitant]
     Active Substance: CHLORAMPHENICOL
  3. CLOBAZAM [Suspect]
     Active Substance: CLOBAZAM
     Indication: EPILEPSY
     Route: 048
     Dates: start: 20120907
  4. CARBAMAZEPINE. [Concomitant]
     Active Substance: CARBAMAZEPINE

REACTIONS (1)
  - Hypersensitivity [Unknown]
